FAERS Safety Report 4953821-0 (Version None)
Quarter: 2006Q1

REPORT INFORMATION
  Report Type: 
  Country: None (occurrence: None)
  Receive Date: 20060324
  Receipt Date: 20060324
  Transmission Date: 20060701
  Serious: Yes (Hospitalization)
  Sender: FDA-Public Use
  Company Number: None

PATIENT
  Sex: Female
  Weight: 42.1845 kg

DRUGS (5)
  1. TENOFOVIR DISOPROXIL FUMARATE    300 MG    GILEAD SCIENCES [Suspect]
     Indication: HIV INFECTION
     Dosage: 300 MG   DAILY  PO
     Route: 048
     Dates: start: 20030514, end: 20050920
  2. RITONAVIR [Concomitant]
  3. ATAZANAVIR SULFATE [Concomitant]
  4. LAMIVUDINE [Concomitant]
  5. ATENOLOL [Concomitant]

REACTIONS (5)
  - ASTHENIA [None]
  - DECREASED APPETITE [None]
  - FANCONI SYNDROME [None]
  - NEUROPATHY [None]
  - WEIGHT DECREASED [None]
